FAERS Safety Report 6558760-X (Version None)
Quarter: 2010Q1

REPORT INFORMATION
  Report Type: 
  Country: None (occurrence: None)
  Receive Date: 20100129
  Receipt Date: 20100120
  Transmission Date: 20100710
  Serious: Yes (Death)
  Sender: FDA-Public Use
  Company Number: KR-ABBOTT-09P-090-0615384-00

PATIENT
  Age: 67 Year
  Sex: Female

DRUGS (4)
  1. HUMIRA [Suspect]
     Indication: RHEUMATOID ARTHRITIS
     Dates: start: 20090806, end: 20090806
  2. LEFLUNOMIDE [Concomitant]
     Indication: DRUG USE FOR UNKNOWN INDICATION
  3. BUCILLAMINE [Concomitant]
     Indication: DRUG USE FOR UNKNOWN INDICATION
  4. CYCLOSPORINE [Concomitant]
     Indication: DRUG USE FOR UNKNOWN INDICATION

REACTIONS (1)
  - PULMONARY OEDEMA [None]
